FAERS Safety Report 7450891-5 (Version None)
Quarter: 2011Q2

REPORT INFORMATION
  Report Type: 
  Country: None (occurrence: None)
  Receive Date: 20110429
  Receipt Date: 20110429
  Transmission Date: 20111010
  Serious: Yes (Life-Threatening)
  Sender: FDA-Public Use
  Company Number: None

PATIENT
  Age: 55 Year
  Sex: Male
  Weight: 63.5 kg

DRUGS (2)
  1. CIPROFLOXACIN [Suspect]
     Indication: PROPHYLAXIS
     Dates: start: 20110408, end: 20110408
  2. CIPROFLOXACIN [Suspect]

REACTIONS (4)
  - BRADYCARDIA [None]
  - BLOOD PRESSURE FLUCTUATION [None]
  - HYPOTENSION [None]
  - ANAPHYLACTIC REACTION [None]
